FAERS Safety Report 4921314-2 (Version None)
Quarter: 2006Q1

REPORT INFORMATION
  Report Type: 
  Country: None (occurrence: None)
  Receive Date: 20060221
  Receipt Date: 20060214
  Transmission Date: 20060701
  Serious: Yes (Hospitalization, Other)
  Sender: FDA-Public Use
  Company Number: 2006021706

PATIENT
  Age: 59 Year
  Sex: Male

DRUGS (1)
  1. CETIRIZINE HCL AND PSEUDOEPHEDRINE HCL [Suspect]
     Indication: RHINITIS
     Dosage: (2 IN 1 D), ORAL
     Route: 048
     Dates: start: 20051120, end: 20051121

REACTIONS (3)
  - HYPERTENSION [None]
  - TACHYCARDIA [None]
  - TRANSIENT ISCHAEMIC ATTACK [None]
